FAERS Safety Report 5204499-2 (Version None)
Quarter: 2007Q1

REPORT INFORMATION
  Report Type: 
  Country: None (occurrence: None)
  Receive Date: 20070110
  Receipt Date: 20060417
  Transmission Date: 20070707
  Serious: No
  Sender: FDA-Public Use
  Company Number: US-BRISTOL-MYERS SQUIBB COMPANY-13348727

PATIENT
  Age: 22 Year
  Sex: Male
  Weight: 88 kg

DRUGS (3)
  1. ABILIFY [Suspect]
     Indication: DEPRESSED MOOD
     Route: 048
     Dates: start: 20040101, end: 20050501
  2. TRILEPTAL [Concomitant]
     Dates: start: 20020101
  3. DEPAKOTE ER [Concomitant]
     Dates: start: 20000101

REACTIONS (2)
  - METABOLIC DISORDER [None]
  - WEIGHT DECREASED [None]
